FAERS Safety Report 6290793-3 (Version None)
Quarter: 2009Q3

REPORT INFORMATION
  Report Type: 
  Country: None (occurrence: None)
  Receive Date: 20090729
  Receipt Date: 20090729
  Transmission Date: 20100115
  Serious: Yes (Other)
  Sender: FDA-Public Use
  Company Number: None

PATIENT
  Age: 41 Year
  Sex: Male
  Weight: 86.1834 kg

DRUGS (1)
  1. SMOKING EVERYWHERE E-CIGARETTE HIGH NICOTINE -16MG- PER CARTRIDGE SMOK [Suspect]
     Indication: SMOKING CESSATION THERAPY
     Dosage: AVG 2 - 3 CATRIDGE PER DAY DAILY
     Dates: start: 20090717, end: 20090726

REACTIONS (6)
  - ALTERED VISUAL DEPTH PERCEPTION [None]
  - DISORIENTATION [None]
  - DIZZINESS [None]
  - HEADACHE [None]
  - NAUSEA [None]
  - VISION BLURRED [None]
